FAERS Safety Report 25979362 (Version 1)
Quarter: 2025Q4

REPORT INFORMATION
  Report Type: Spontaneous
  Country: EU (occurrence: EU)
  Receive Date: 20251030
  Receipt Date: 20251030
  Transmission Date: 20260118
  Serious: Yes (Life-Threatening, Other)
  Sender: RANBAXY
  Company Number: EU-CADRBFARM-2025337165

PATIENT
  Age: 65 Year
  Sex: Male
  Weight: 88 kg

DRUGS (1)
  1. TAMSULOSIN [Suspect]
     Active Substance: TAMSULOSIN
     Indication: Prostatic disorder
     Dosage: 0.4 MILLIGRAM, DAILY
     Route: 048
     Dates: start: 20250418, end: 20250601

REACTIONS (12)
  - Oxygen saturation decreased [Recovering/Resolving]
  - Syncope [Recovering/Resolving]
  - Malaise [Recovered/Resolved]
  - Food allergy [Not Recovered/Not Resolved]
  - Blood pressure decreased [Recovered/Resolved]
  - Dizziness [Recovered/Resolved]
  - Dairy intolerance [Not Recovered/Not Resolved]
  - Milk allergy [Not Recovered/Not Resolved]
  - Milk allergy [Not Recovered/Not Resolved]
  - Cyanosis [Recovering/Resolving]
  - Dyspnoea [Recovering/Resolving]
  - Food allergy [Not Recovered/Not Resolved]

NARRATIVE: CASE EVENT DATE: 20250101
